FAERS Safety Report 8924885 (Version 2)
Quarter: 2013Q1

REPORT INFORMATION
  Report Type: Spontaneous
  Country: US (occurrence: US)
  Receive Date: 20121126
  Receipt Date: 20130201
  Transmission Date: 20140127
  Serious: Yes (Other)
  Sender: FDA-Public Use
  Company Number: US-BAXTER-2012BAX024727

PATIENT
  Age: 46 None
  Sex: Female
  Weight: 90.91 kg

DRUGS (21)
  1. GAMMAGARD LIQUID [Suspect]
     Indication: IMMUNODEFICIENCY COMMON VARIABLE
     Dosage: NOT REPORTED
     Route: 058
     Dates: start: 20121014, end: 20121014
  2. GAMMAGARD LIQUID [Suspect]
     Dates: start: 201205
  3. METHOTREXATE [Concomitant]
     Indication: RHEUMATOID ARTHRITIS
  4. HYDROCHLOROTHIAZIDE [Concomitant]
     Indication: PRODUCT USED FOR UNKNOWN INDICATION
  5. NEXIUM [Concomitant]
     Indication: PRODUCT USED FOR UNKNOWN INDICATION
  6. METFORMIN [Concomitant]
     Indication: PRODUCT USED FOR UNKNOWN INDICATION
  7. PREDNISONE [Concomitant]
     Indication: INFLAMMATION
  8. CYMBALTA [Concomitant]
     Indication: PRODUCT USED FOR UNKNOWN INDICATION
  9. TRAZODONE [Concomitant]
     Indication: PRODUCT USED FOR UNKNOWN INDICATION
  10. SOMA [Concomitant]
     Indication: PRODUCT USED FOR UNKNOWN INDICATION
  11. OXYCONTIN [Concomitant]
     Indication: PRODUCT USED FOR UNKNOWN INDICATION
  12. FENTANYL PATCHES [Concomitant]
     Indication: PRODUCT USED FOR UNKNOWN INDICATION
     Route: 061
  13. SPIRIVA [Concomitant]
     Indication: PRODUCT USED FOR UNKNOWN INDICATION
     Dates: start: 2012
  14. TOPAMAX [Concomitant]
     Indication: PRODUCT USED FOR UNKNOWN INDICATION
  15. ESTRADIOL [Concomitant]
     Indication: PRODUCT USED FOR UNKNOWN INDICATION
  16. CHANTIX [Concomitant]
     Indication: TOBACCO USER
  17. XANAX [Concomitant]
     Indication: ANXIETY
  18. ONDANSETRON [Concomitant]
     Indication: NAUSEA
  19. ALBUTEROL [Concomitant]
     Indication: ASTHMA
  20. DULERA [Concomitant]
     Indication: ASTHMA
  21. XOPENEX [Concomitant]
     Indication: ASTHMA

REACTIONS (1)
  - Upper respiratory tract infection [Recovered/Resolved]
